FAERS Safety Report 16849496 (Version 2)
Quarter: 2019Q4

REPORT INFORMATION
  Report Type: Spontaneous
  Country: DE (occurrence: DE)
  Receive Date: 20190925
  Receipt Date: 20191209
  Transmission Date: 20200122
  Serious: Yes (Other)
  Sender: FDA-Public Use
  Company Number: DE-ROCHE-2420075

PATIENT
  Age: 18 Year
  Sex: Male

DRUGS (6)
  1. OCREVUS [Suspect]
     Active Substance: OCRELIZUMAB
     Dosage: 2ND INITIAL INFUSION
     Route: 042
     Dates: start: 20190903
  2. IBUPROFEN. [Concomitant]
     Active Substance: IBUPROFEN
     Route: 048
  3. PREDNISOLON [PREDNISOLONE] [Concomitant]
     Active Substance: PREDNISOLONE
     Route: 042
     Dates: start: 20190820
  4. FENISTIL [Concomitant]
     Active Substance: DIMETHINDENE
     Route: 042
  5. OCREVUS [Suspect]
     Active Substance: OCRELIZUMAB
     Indication: MULTIPLE SCLEROSIS
     Dosage: 1ST INITIAL INFUSION
     Route: 042
     Dates: start: 20190820
  6. TAGAMET [Concomitant]
     Active Substance: CIMETIDINE
     Indication: PREMEDICATION
     Route: 042

REACTIONS (2)
  - Flushing [Recovered/Resolved]
  - Multiple sclerosis relapse [Unknown]

NARRATIVE: CASE EVENT DATE: 20190820
